FAERS Safety Report 13653286 (Version 1)
Quarter: 2017Q2

REPORT INFORMATION
  Report Type: Spontaneous
  Country: US (occurrence: US)
  Receive Date: 20170614
  Receipt Date: 20170614
  Transmission Date: 20170830
  Serious: No
  Sender: FDA-Public Use
  Company Number: US-ROCHE-1425711

PATIENT
  Sex: Male

DRUGS (2)
  1. XELODA [Suspect]
     Active Substance: CAPECITABINE
     Indication: NEOPLASM MALIGNANT
     Dosage: 3 TABS BID
     Route: 048
     Dates: start: 20140604
  2. XELODA [Suspect]
     Active Substance: CAPECITABINE
     Dosage: BID 14 DAYS ON 7 DAYS OFF, REPEAT EVERY 21 DAYS.
     Route: 048
     Dates: start: 20140701

REACTIONS (4)
  - Erythema [Unknown]
  - Neuropathy peripheral [Unknown]
  - Erythema [Not Recovered/Not Resolved]
  - Pain in extremity [Unknown]
